FAERS Safety Report 19188183 (Version 2)
Quarter: 2021Q2

REPORT INFORMATION
  Report Type: Report from Study
  Country: None (occurrence: AU)
  Receive Date: 20210427
  Receipt Date: 20210506
  Transmission Date: 20210717
  Serious: Yes (Hospitalization)
  Sender: FDA-Public Use
  Company Number: AU-ABBVIE-21P-008-3867485-00

PATIENT
  Age: 9 Year
  Sex: Male
  Weight: 50.9 kg

DRUGS (38)
  1. VINCRISTINE [Suspect]
     Active Substance: VINCRISTINE
     Indication: RECURRENT CANCER
     Route: 042
     Dates: start: 20210305, end: 20210305
  2. CYTARABINE. [Suspect]
     Active Substance: CYTARABINE
     Indication: RECURRENT CANCER
     Route: 042
     Dates: start: 20210317, end: 20210320
  3. CYCLOPHOSPHAMIDE. [Suspect]
     Active Substance: CYCLOPHOSPHAMIDE
     Indication: RECURRENT CANCER
     Route: 065
     Dates: start: 20210413, end: 20210413
  4. MERCAPTOPURINE. [Suspect]
     Active Substance: MERCAPTOPURINE
     Route: 048
     Dates: start: 20210504
  5. OXYCODONE [Concomitant]
     Active Substance: OXYCODONE
     Indication: PAIN IN JAW
     Route: 048
     Dates: start: 20210210
  6. OSMOLAX [Concomitant]
     Indication: CONSTIPATION
     Route: 048
     Dates: start: 20210221
  7. BACTRIM [Concomitant]
     Active Substance: SULFAMETHOXAZOLE\TRIMETHOPRIM
     Indication: ANTIFUNGAL PROPHYLAXIS
     Dosage: 800/160 MG, MON, WED, FRI
     Route: 048
     Dates: start: 20210312
  8. ONDANSETRON [Concomitant]
     Active Substance: ONDANSETRON
     Route: 048
     Dates: start: 20210312
  9. PEGASPARAGINASE [Suspect]
     Active Substance: PEGASPARGASE
     Indication: REFRACTORY CANCER
  10. CYTARABINE. [Suspect]
     Active Substance: CYTARABINE
     Route: 042
     Dates: end: 20210416
  11. PREDNISONE. [Suspect]
     Active Substance: PREDNISONE
     Route: 042
     Dates: start: 20210313, end: 20210315
  12. DAUNORUBICIN [Concomitant]
     Active Substance: DAUNORUBICIN
     Indication: CHEMOTHERAPY
     Route: 042
     Dates: start: 20210305, end: 20210305
  13. PARACETAMOL [Concomitant]
     Active Substance: ACETAMINOPHEN
     Indication: BACK PAIN
  14. VINCRISTINE [Suspect]
     Active Substance: VINCRISTINE
     Indication: REFRACTORY CANCER
  15. PREDNISONE. [Suspect]
     Active Substance: PREDNISONE
     Indication: RECURRENT CANCER
     Route: 042
     Dates: start: 20210306, end: 20210309
  16. VENETOCLAX. [Suspect]
     Active Substance: VENETOCLAX
     Indication: RECURRENT CANCER
     Route: 048
     Dates: start: 20210303, end: 20210408
  17. PEGASPARAGINASE [Suspect]
     Active Substance: PEGASPARGASE
     Indication: RECURRENT CANCER
     Dosage: 2500 IU/M2
     Route: 042
     Dates: start: 20210302, end: 20210302
  18. CYTARABINE. [Suspect]
     Active Substance: CYTARABINE
     Route: 042
     Dates: start: 20210504
  19. METHOTREXATE. [Suspect]
     Active Substance: METHOTREXATE
     Indication: REFRACTORY CANCER
     Dosage: DAY 33 CHEMO AS PER PROTOCOL
     Route: 037
     Dates: start: 20210309, end: 20210309
  20. PARACETAMOL [Concomitant]
     Active Substance: ACETAMINOPHEN
     Indication: PAIN IN EXTREMITY
  21. SODIUM BICARBONATE MOUTHWASH [Concomitant]
     Indication: DENTAL DISORDER PROPHYLAXIS
     Route: 061
     Dates: start: 20210302
  22. VENETOCLAX. [Suspect]
     Active Substance: VENETOCLAX
     Indication: REFRACTORY CANCER
     Route: 048
     Dates: start: 20210302, end: 20210302
  23. NYSTATIN. [Concomitant]
     Active Substance: NYSTATIN
     Indication: DENTAL DISORDER PROPHYLAXIS
     Route: 048
     Dates: start: 20210302
  24. OXYCODONE [Concomitant]
     Active Substance: OXYCODONE
     Indication: BACK PAIN
  25. PARACETAMOL [Concomitant]
     Active Substance: ACETAMINOPHEN
     Indication: PAIN IN JAW
     Dosage: 750?790 MG
     Route: 048
     Dates: start: 20210210
  26. PARACETAMOL [Concomitant]
     Active Substance: ACETAMINOPHEN
     Indication: PYREXIA
  27. CYCLOPHOSPHAMIDE. [Suspect]
     Active Substance: CYCLOPHOSPHAMIDE
     Indication: REFRACTORY CANCER
  28. METHOTREXATE. [Suspect]
     Active Substance: METHOTREXATE
     Indication: RECURRENT CANCER
  29. FILGRASTIM [Concomitant]
     Active Substance: FILGRASTIM
     Indication: NEUTROPENIA
     Route: 042
     Dates: start: 20210322
  30. ONDANSETRON [Concomitant]
     Active Substance: ONDANSETRON
     Indication: PROPHYLAXIS OF NAUSEA AND VOMITING
     Route: 042
     Dates: start: 20210205
  31. VENETOCLAX. [Suspect]
     Active Substance: VENETOCLAX
     Route: 050
     Dates: start: 20210309, end: 20210418
  32. VENETOCLAX. [Suspect]
     Active Substance: VENETOCLAX
     Route: 050
     Dates: start: 20210504
  33. CYTARABINE. [Suspect]
     Active Substance: CYTARABINE
     Indication: REFRACTORY CANCER
     Route: 042
     Dates: start: 20210406, end: 20210409
  34. MERCAPTOPURINE. [Suspect]
     Active Substance: MERCAPTOPURINE
     Indication: REFRACTORY CANCER
     Route: 048
     Dates: start: 20210317, end: 20210321
  35. MERCAPTOPURINE. [Suspect]
     Active Substance: MERCAPTOPURINE
     Indication: RECURRENT CANCER
     Route: 048
     Dates: start: 20210406, end: 20210419
  36. PREDNISONE. [Suspect]
     Active Substance: PREDNISONE
     Indication: REFRACTORY CANCER
     Route: 042
     Dates: start: 20210309, end: 20210312
  37. OXYCODONE [Concomitant]
     Active Substance: OXYCODONE
     Indication: PAIN IN EXTREMITY
  38. FISH OIL CAPSULES [Concomitant]
     Active Substance: FISH OIL
     Indication: BLOOD TRIGLYCERIDES INCREASED
     Route: 048
     Dates: start: 20210319

REACTIONS (1)
  - Anaemia [Recovered/Resolved]

NARRATIVE: CASE EVENT DATE: 20210419
